FAERS Safety Report 9291451 (Version 6)
Quarter: 2014Q3

REPORT INFORMATION
  Report Type: Spontaneous
  Country: US (occurrence: US)
  Receive Date: 20130515
  Receipt Date: 20140903
  Transmission Date: 20150326
  Serious: Yes (Other)
  Sender: FDA-Public Use
  Company Number: US-009507513-1305USA009414

PATIENT
  Sex: Male
  Weight: 113.38 kg

DRUGS (1)
  1. PROPECIA [Suspect]
     Active Substance: FINASTERIDE
     Indication: ALOPECIA
     Dosage: 1 MG, UNK
     Route: 048
     Dates: start: 200310

REACTIONS (28)
  - Mammoplasty [Unknown]
  - Anxiety [Not Recovered/Not Resolved]
  - Sciatica [Unknown]
  - Erectile dysfunction [Unknown]
  - Respiratory tract inflammation [Unknown]
  - Nipple disorder [Unknown]
  - Wound [Unknown]
  - Intervertebral disc protrusion [Unknown]
  - Sexual dysfunction [Not Recovered/Not Resolved]
  - Painful ejaculation [Unknown]
  - Insomnia [Not Recovered/Not Resolved]
  - Affective disorder [Unknown]
  - Ocular hyperaemia [Unknown]
  - Weight increased [Unknown]
  - Liposuction [Unknown]
  - Neuropathy peripheral [Unknown]
  - Sexual dysfunction [Unknown]
  - Pain [Unknown]
  - Rectal polyp [Unknown]
  - Depression [Not Recovered/Not Resolved]
  - Loss of libido [Unknown]
  - Irritable bowel syndrome [Unknown]
  - Somatisation disorder [Unknown]
  - Knee operation [Unknown]
  - Gastrooesophageal reflux disease [Unknown]
  - Bronchitis [Unknown]
  - Lipoma excision [Unknown]
  - Gynaecomastia [Unknown]

NARRATIVE: CASE EVENT DATE: 200403
